FAERS Safety Report 10220060 (Version 2)
Quarter: 2014Q2

REPORT INFORMATION
  Report Type: Spontaneous
  Country: JP (occurrence: JP)
  Receive Date: 20140605
  Receipt Date: 20140626
  Transmission Date: 20141212
  Serious: Yes (Hospitalization, Other)
  Sender: FDA-Public Use
  Company Number: JP-JNJFOC-20140600979

PATIENT
  Age: 21 Year
  Sex: Male

DRUGS (4)
  1. REMICADE [Suspect]
     Indication: COLITIS ULCERATIVE
     Route: 042
  2. AZANIN [Suspect]
     Indication: COLITIS ULCERATIVE
     Route: 048
  3. MESALAZINE [Suspect]
     Indication: COLITIS ULCERATIVE
     Route: 065
  4. UNKNOWN ADRENAL HORMONE PREPARATIONS [Suspect]
     Indication: COLITIS ULCERATIVE
     Route: 065

REACTIONS (4)
  - Pyoderma gangrenosum [Recovering/Resolving]
  - Organising pneumonia [Recovered/Resolved]
  - Liver injury [Recovered/Resolved]
  - Colitis ulcerative [Unknown]
